FAERS Safety Report 19488236 (Version 1)
Quarter: 2021Q3

REPORT INFORMATION
  Report Type: Spontaneous
  Country: US (occurrence: US)
  Receive Date: 20210702
  Receipt Date: 20210702
  Transmission Date: 20211014
  Serious: No
  Sender: FDA-Public Use
  Company Number: US-BIOCRYST-2021BCR00091

PATIENT
  Age: 49 Year
  Sex: Female
  Weight: 68.4 kg

DRUGS (13)
  1. ORLADEYO [Suspect]
     Active Substance: BEROTRALSTAT HYDROCHLORIDE
     Indication: HEREDITARY ANGIOEDEMA
     Dosage: 150 MG, 1X/DAY
     Route: 048
     Dates: start: 20210118, end: 20210408
  2. PRILOSEC [Concomitant]
     Active Substance: OMEPRAZOLE MAGNESIUM
     Dosage: 20 MG
  3. ZOFRAN [Concomitant]
     Active Substance: ONDANSETRON HYDROCHLORIDE
     Dosage: UNK, AS NEEDED
  4. VHD SUPPLEMENT [Concomitant]
  5. ORLADEYO [Suspect]
     Active Substance: BEROTRALSTAT HYDROCHLORIDE
     Indication: HEREDITARY ANGIOEDEMA
     Dosage: 110 MG, 1X/DAY
     Route: 048
     Dates: start: 20210409, end: 20210501
  6. MOBIC [Concomitant]
     Active Substance: MELOXICAM
  7. CYMBALTA [Concomitant]
     Active Substance: DULOXETINE HYDROCHLORIDE
  8. FIRAZYR [Concomitant]
     Active Substance: ICATIBANT ACETATE
     Dosage: UNK, AS NEEDED
  9. AMBIEN [Concomitant]
     Active Substance: ZOLPIDEM TARTRATE
     Dosage: 10 MG, 1X/DAY
  10. VITAMIN D [Concomitant]
     Active Substance: VITAMIN D NOS
  11. TYLENOL [Concomitant]
     Active Substance: ACETAMINOPHEN
     Dosage: UNK, AS NEEDED
  12. ESTRADIOL. [Concomitant]
     Active Substance: ESTRADIOL
  13. PAXIL [Concomitant]
     Active Substance: PAROXETINE HYDROCHLORIDE

REACTIONS (2)
  - Gastrooesophageal reflux disease [Unknown]
  - Colitis [Unknown]

NARRATIVE: CASE EVENT DATE: 20210219
